FAERS Safety Report 7410826-8 (Version None)
Quarter: 2011Q2

REPORT INFORMATION
  Report Type: 
  Country: None (occurrence: None)
  Receive Date: 20110413
  Receipt Date: 20110408
  Transmission Date: 20111010
  Serious: No
  Sender: FDA-Public Use
  Company Number: US-PFIZER INC-2010063279

PATIENT
  Sex: Female
  Weight: 104 kg

DRUGS (6)
  1. SERTRALINE HYDROCHLORIDE [Suspect]
     Dosage: 200 MG, DAILY
     Route: 048
  2. SERTRALINE HYDROCHLORIDE [Suspect]
     Indication: ANXIETY
     Dosage: 100 MG, 1X/DAY
     Route: 048
  3. LUMIGAN [Concomitant]
     Indication: GLAUCOMA
     Dosage: UNK
  4. LISINOPRIL [Concomitant]
     Indication: HYPERTENSION
     Dosage: UNK
  5. BRIMONIDINE [Concomitant]
     Indication: GLAUCOMA
     Dosage: UNK
  6. VESICARE [Concomitant]
     Indication: BLADDER DISORDER
     Dosage: UNK

REACTIONS (3)
  - DYSGEUSIA [None]
  - PRODUCT ODOUR ABNORMAL [None]
  - DRUG INEFFECTIVE [None]
